FAERS Safety Report 18853125 (Version 1)
Quarter: 2021Q1

REPORT INFORMATION
  Report Type: Spontaneous
  Country: IN (occurrence: IN)
  Receive Date: 20210205
  Receipt Date: 20210205
  Transmission Date: 20210420
  Serious: Yes (Hospitalization)
  Sender: FDA-Public Use
  Company Number: IN-STRIDES ARCOLAB LIMITED-2021SP001483

PATIENT
  Age: 12 Year
  Sex: Male

DRUGS (24)
  1. HYDROCORTISONE. [Suspect]
     Active Substance: HYDROCORTISONE
     Dosage: UNK, 3 DOSES ON DAYS 2, 4 AND 6
     Route: 037
  2. CYCLOPHOSPHAMIDE. [Interacting]
     Active Substance: CYCLOPHOSPHAMIDE
     Dosage: 500 MILLIGRAM/SQ. METER PER DAY (DAYS 2?4)
     Route: 065
  3. LEUCOVORIN [FOLINIC ACID] [Suspect]
     Active Substance: LEUCOVORIN
     Dosage: UNK, RECEIVED FOUR EXTRA DOSES OF FOLINIC ACID
     Route: 065
  4. DOXORUBICIN [Interacting]
     Active Substance: DOXORUBICIN
     Indication: CSF CULTURE POSITIVE
     Dosage: 60 MILLIGRAM/SQ. METER ON DAY 2
     Route: 065
  5. PREDNISOLONE. [Suspect]
     Active Substance: PREDNISOLONE
     Dosage: 60 MILLIGRAM/SQ. METER DAILY
     Route: 048
  6. PREDNISOLONE. [Suspect]
     Active Substance: PREDNISOLONE
     Dosage: UNK, INTENSIVE COURSE
     Route: 048
  7. HYDROCORTISONE. [Suspect]
     Active Substance: HYDROCORTISONE
     Indication: BURKITT^S LEUKAEMIA
     Dosage: UNK, TRIPLE THERAPY
     Route: 037
  8. VINCRISTINE [Suspect]
     Active Substance: VINCRISTINE
     Dosage: 2 MILLIGRAM/SQ. METER, SINGLE ON DAY 1
     Route: 065
  9. VINCRISTINE [Suspect]
     Active Substance: VINCRISTINE
     Indication: BURKITT^S LEUKAEMIA
     Dosage: 1 MILLIGRAM/SQ. METER, SINGLE
     Route: 065
  10. METHOTREXATE. [Interacting]
     Active Substance: METHOTREXATE
     Indication: BURKITT^S LEUKAEMIA
     Dosage: UNK,TRIPLE THERAPY
     Route: 037
  11. METHOTREXATE. [Interacting]
     Active Substance: METHOTREXATE
     Dosage: UNK, DOSE REDUCED, INTENSIVE COURSE
     Route: 065
  12. LEUCOVORIN [FOLINIC ACID] [Suspect]
     Active Substance: LEUCOVORIN
     Dosage: UNK, INTENSIVE COURSE
     Route: 065
  13. VINCRISTINE [Suspect]
     Active Substance: VINCRISTINE
     Dosage: UNK, INTENSIVE COURSE
     Route: 065
  14. METHOTREXATE. [Interacting]
     Active Substance: METHOTREXATE
     Dosage: UNK, 3 DOSES ON DAYS 2, 4 AND 6
     Route: 037
  15. CYTARABINE. [Suspect]
     Active Substance: CYTARABINE
     Dosage: UNK, 3 DOSES ON DAYS 2, 4 AND 6
     Route: 037
  16. RITUXIMAB. [Suspect]
     Active Substance: RITUXIMAB
     Indication: BURKITT^S LEUKAEMIA
     Dosage: 375 MILLIGRAM/SQ. METER, 2 DOSES ON ALTERNATE DAYS
     Route: 065
  17. DOXORUBICIN [Interacting]
     Active Substance: DOXORUBICIN
     Dosage: UNK, INTENSIVE COURSE
     Route: 065
  18. CYCLOPHOSPHAMIDE. [Interacting]
     Active Substance: CYCLOPHOSPHAMIDE
     Indication: BURKITT^S LEUKAEMIA
     Dosage: 300 MILLIGRAM/SQ. METER
     Route: 065
  19. CYCLOPHOSPHAMIDE. [Interacting]
     Active Substance: CYCLOPHOSPHAMIDE
     Dosage: UNK, INTENSIVE COURSE
     Route: 065
  20. LEUCOVORIN [FOLINIC ACID] [Suspect]
     Active Substance: LEUCOVORIN
     Indication: BURKITT^S LEUKAEMIA
     Dosage: 16 DOSES OF FOLINIC ACID (LEUCOVORIN) RESCUE
     Route: 065
  21. PREDNISOLONE. [Suspect]
     Active Substance: PREDNISOLONE
     Indication: BURKITT^S LEUKAEMIA
     Dosage: 60 MILLIGRAM/SQ. METER DAILY
     Route: 048
  22. METHOTREXATE. [Interacting]
     Active Substance: METHOTREXATE
     Dosage: 8 GRAM PER SQUARE METRE M2 OVER 4 HOURS, HIGH DOSE
     Route: 065
  23. METHOTREXATE. [Interacting]
     Active Substance: METHOTREXATE
     Dosage: UNK, 38?51MICROMOLE PER LITRE
     Route: 065
  24. CYTARABINE. [Suspect]
     Active Substance: CYTARABINE
     Indication: BURKITT^S LEUKAEMIA
     Dosage: UNK, TRIPLE THERAPY
     Route: 037

REACTIONS (2)
  - Drug interaction [Unknown]
  - Drug-induced liver injury [Recovered/Resolved]
